FAERS Safety Report 16792324 (Version 1)
Quarter: 2019Q3

REPORT INFORMATION
  Report Type: Spontaneous
  Country: BR (occurrence: BR)
  Receive Date: 20190910
  Receipt Date: 20190910
  Transmission Date: 20191005
  Serious: Yes (Hospitalization)
  Sender: FDA-Public Use
  Company Number: BR-PFIZER INC-2018439773

PATIENT
  Age: 57 Year
  Sex: Female

DRUGS (2)
  1. IRINOTECAN HCL [Suspect]
     Active Substance: IRINOTECAN HYDROCHLORIDE
     Indication: CHEMOTHERAPY
     Dosage: UNK (ELEVATED DOSES/DOSE 1.5 TIMES GREATER THAN THE ONE RECOMMENDED)
  2. CETUXIMAB. [Suspect]
     Active Substance: CETUXIMAB
     Indication: CHEMOTHERAPY
     Dosage: UNK (ELEVATED DOSES/DOSE 1.5 TIMES GREATER THAN THE ONE RECOMMENDED)

REACTIONS (9)
  - Overdose [Unknown]
  - Nausea [Unknown]
  - Mucosal inflammation [Unknown]
  - Diarrhoea [Unknown]
  - Product prescribing error [Unknown]
  - Toxicity to various agents [Unknown]
  - Asthenia [Unknown]
  - Neutropenia [Unknown]
  - Vomiting [Unknown]
